FAERS Safety Report 24604594 (Version 2)
Quarter: 2024Q4

REPORT INFORMATION
  Report Type: Spontaneous
  Country: FR (occurrence: FR)
  Receive Date: 20241111
  Receipt Date: 20241113
  Transmission Date: 20250115
  Serious: Yes (Hospitalization)
  Sender: MYLAN
  Company Number: None

PATIENT
  Age: 81 Year
  Sex: Female
  Weight: 62 kg

DRUGS (2)
  1. CANDESARTAN [Suspect]
     Active Substance: CANDESARTAN
     Indication: Hypertension
     Dosage: UNK
     Route: 048
  2. HEXAMIDINE DIISETHIONATE\LIDOCAINE HYDROCHLORIDE [Suspect]
     Active Substance: HEXAMIDINE DIISETHIONATE\LIDOCAINE HYDROCHLORIDE
     Indication: Odynophagia
     Dosage: UNK (ORAL SPRAY SOLUTION IN PRESSURISED BOTTLE)
     Route: 048
     Dates: start: 20240830, end: 20240831

REACTIONS (2)
  - Angioedema [Recovering/Resolving]
  - Pyrexia [Recovering/Resolving]

NARRATIVE: CASE EVENT DATE: 20240831
